FAERS Safety Report 20514600 (Version 2)
Quarter: 2022Q1

REPORT INFORMATION
  Report Type: Report from Study
  Country: US (occurrence: US)
  Receive Date: 20220224
  Receipt Date: 20220314
  Transmission Date: 20220423
  Serious: Yes (Death)
  Sender: FDA-Public Use
  Company Number: US-TEVA-2022-US-2009370

PATIENT
  Age: 59 Year
  Sex: Female

DRUGS (3)
  1. DESMOPRESSIN [Suspect]
     Active Substance: DESMOPRESSIN
     Indication: Haemorrhage intracranial
     Route: 065
  2. PROTHROMBIN COMPLEX CONCENTRATE NOS [Suspect]
     Active Substance: COAGULATION FACTOR IX HUMAN\COAGULATION FACTOR VII HUMAN\COAGULATION FACTOR X HUMAN\PROTHROMBIN
     Indication: Haemorrhage intracranial
     Route: 065
  3. VITAMIN K [Suspect]
     Active Substance: PHYTONADIONE
     Indication: Haemorrhage intracranial
     Route: 065

REACTIONS (1)
  - Drug ineffective [Fatal]
